FAERS Safety Report 8502762-0 (Version None)
Quarter: 2012Q3

REPORT INFORMATION
  Report Type: 
  Country: None (occurrence: None)
  Receive Date: 20120711
  Receipt Date: 20120703
  Transmission Date: 20120928
  Serious: Yes (Other)
  Sender: FDA-Public Use
  Company Number: US-ASTRAZENECA-2012SE15206

PATIENT
  Age: 60 Year
  Sex: Female

DRUGS (7)
  1. NEXIUM [Suspect]
     Route: 048
     Dates: start: 20090102
  2. METHYLPREDNISOLONE [Concomitant]
     Dosage: 4 MG TAKE AS  DIRECTED
     Dates: start: 20081203
  3. LEVOTHYROXINE SODIUM [Concomitant]
     Route: 048
     Dates: start: 20081227
  4. AMOXICILLIN [Concomitant]
     Route: 048
     Dates: start: 20081202
  5. NEXIUM [Suspect]
     Route: 048
     Dates: end: 20110401
  6. PROMETHAZINE [Concomitant]
     Route: 048
     Dates: start: 20090104
  7. ACETAMINOPHEN COD NO 3 [Concomitant]
     Dosage: 1 TABLET BY MOUTH THREE TIMES A
     Route: 048
     Dates: start: 20090102

REACTIONS (7)
  - SKELETAL INJURY [None]
  - COMPRESSION FRACTURE [None]
  - BONE LOSS [None]
  - ADVERSE EVENT [None]
  - SPINAL COMPRESSION FRACTURE [None]
  - FRACTURE [None]
  - BONE DISORDER [None]
